FAERS Safety Report 9967256 (Version 2)
Quarter: 2014Q1

REPORT INFORMATION
  Report Type: Report from Study
  Country: US (occurrence: US)
  Receive Date: 20140305
  Receipt Date: 20140305
  Transmission Date: 20141002
  Serious: No
  Sender: FDA-Public Use
  Company Number: US-ABBVIE-09P-163-0595877-00

PATIENT
  Age: 57 Year
  Sex: Female
  Weight: 127.12 kg

DRUGS (16)
  1. HUMIRA [Suspect]
     Indication: PSORIATIC ARTHROPATHY
     Dates: start: 20070908
  2. HUMIRA [Suspect]
     Dates: start: 20080308
  3. COLACE [Concomitant]
     Indication: CONSTIPATION PROPHYLAXIS
  4. FLOMAX [Concomitant]
     Indication: PROSTATOMEGALY
  5. KEPRA [Concomitant]
     Indication: CONVULSION
  6. LAMICTAL [Concomitant]
     Indication: CONVULSION
  7. LYRICA [Concomitant]
     Indication: PRODUCT USED FOR UNKNOWN INDICATION
  8. ATIVAN [Concomitant]
     Indication: POLYMEDICATION
  9. OMEPRAZOLE [Concomitant]
     Indication: GASTRIC DISORDER
  10. PREDNISONE [Concomitant]
     Indication: PSORIATIC ARTHROPATHY
  11. ABILIFY [Concomitant]
     Indication: DEPRESSION
  12. PRAVACHOL [Concomitant]
     Indication: BLOOD CHOLESTEROL INCREASED
  13. PRIMIDONE [Concomitant]
     Indication: TREMOR
  14. OXYCODONE [Concomitant]
     Indication: PAIN
  15. ROBAXIN [Concomitant]
     Indication: MUSCLE RELAXANT THERAPY
  16. TORADOL [Concomitant]
     Indication: PAIN

REACTIONS (9)
  - Arthralgia [Not Recovered/Not Resolved]
  - Drug ineffective [Not Recovered/Not Resolved]
  - Pain in extremity [Unknown]
  - Injection site bruising [Unknown]
  - Drug dose omission [Unknown]
  - Pain in extremity [Not Recovered/Not Resolved]
  - Joint swelling [Not Recovered/Not Resolved]
  - Local swelling [Not Recovered/Not Resolved]
  - Psoriasis [Not Recovered/Not Resolved]
